FAERS Safety Report 7282559-2 (Version None)
Quarter: 2011Q1

REPORT INFORMATION
  Report Type: 
  Country: None (occurrence: None)
  Receive Date: 20110209
  Receipt Date: 20110124
  Transmission Date: 20110831
  Serious: No
  Sender: FDA-Public Use
  Company Number: US-PFIZER INC-2011026151

PATIENT
  Age: 63 Year
  Sex: Male
  Weight: 68 kg

DRUGS (5)
  1. XANAX [Concomitant]
     Dosage: UP TO 1MG AT BED TIME  AROUND 12-3 AM AND AS NEEDED
  2. KLONOPIN [Concomitant]
     Dosage: UP TO 1 MG AT BED TIME AROUND 12-3 AM AND AS NEEDED
  3. LIPITOR [Concomitant]
     Indication: BLOOD CHOLESTEROL INCREASED
     Dosage: 10 MG, 1X/DAY
  4. DOXEPIN HCL [Suspect]
     Dosage: UNK
  5. FLEXERIL [Concomitant]
     Dosage: 10 MG, 1X/DAY

REACTIONS (1)
  - DRUG INEFFECTIVE [None]
